FAERS Safety Report 6781067-2 (Version None)
Quarter: 2010Q2

REPORT INFORMATION
  Report Type: 
  Country: None (occurrence: None)
  Receive Date: 20100617
  Receipt Date: 20100617
  Transmission Date: 20101027
  Serious: No
  Sender: FDA-Public Use
  Company Number: None

PATIENT
  Age: 63 Year
  Sex: Male
  Weight: 64.6 kg

DRUGS (2)
  1. MOMETASONE FUROATE [Suspect]
     Indication: COUGH
     Dosage: 2 PUFFS EVERY DAY INHAL
     Route: 055
     Dates: start: 20090615, end: 20100331
  2. MOMETASONE FUROATE [Suspect]
     Indication: PULMONARY CONGESTION
     Dosage: 2 PUFFS EVERY DAY INHAL
     Route: 055
     Dates: start: 20090615, end: 20100331

REACTIONS (1)
  - OESOPHAGEAL CANDIDIASIS [None]
